FAERS Safety Report 6370037-4 (Version None)
Quarter: 2009Q3

REPORT INFORMATION
  Report Type: 
  Country: None (occurrence: None)
  Receive Date: 20090923
  Receipt Date: 20070314
  Transmission Date: 20100115
  Serious: No
  Sender: FDA-Public Use
  Company Number: US-ASTRAZENECA-2006UW08090

PATIENT
  Age: 313 Month
  Sex: Female
  Weight: 77.1 kg

DRUGS (22)
  1. SEROQUEL [Suspect]
     Indication: INSOMNIA
     Dosage: 25- 50 MG
     Route: 048
     Dates: start: 20020217, end: 20041014
  2. SEROQUEL [Suspect]
     Route: 048
     Dates: start: 20040101, end: 20041101
  3. LEXAPRO [Concomitant]
     Dosage: 10-20 MG
     Route: 048
  4. NOVOLIN R [Concomitant]
     Dosage: STRENGTH 100 UNITS/ML
     Route: 065
  5. ZITHROMAX [Concomitant]
     Route: 065
  6. TERCONAZOLE [Concomitant]
     Route: 065
  7. AMOXICILLIN [Concomitant]
     Route: 048
  8. FLUCONAZOLE [Concomitant]
     Route: 048
  9. ACTOS [Concomitant]
     Route: 048
  10. CLINDAMYCIN [Concomitant]
     Route: 048
  11. LANTUS [Concomitant]
     Dosage: STRENGTH 100 UNITS/ML
     Route: 065
  12. IBUPROFEN [Concomitant]
     Route: 048
  13. CYCLOBENZAPRINE [Concomitant]
     Route: 048
  14. KETOROLAC TROMETHAMINE [Concomitant]
     Route: 048
  15. ZOCOR [Concomitant]
     Route: 048
  16. LISINOPRIL [Concomitant]
     Route: 048
  17. METRONIDAZOLE [Concomitant]
     Route: 048
  18. HYDROCODONE [Concomitant]
     Dosage: 5/500 MG
     Route: 048
     Dates: end: 20040101
  19. LEVOTHYROXINE SODIUM [Concomitant]
     Route: 048
  20. TRAMADOL HCL [Concomitant]
     Route: 048
  21. ALBUTEROL [Concomitant]
     Route: 065
  22. LEVAQUIN [Concomitant]
     Route: 048

REACTIONS (2)
  - DIABETES MELLITUS [None]
  - DIABETES MELLITUS INADEQUATE CONTROL [None]
